FAERS Safety Report 18733674 (Version 2)
Quarter: 2021Q1

REPORT INFORMATION
  Report Type: Spontaneous
  Country: JP (occurrence: JP)
  Receive Date: 20210113
  Receipt Date: 20210209
  Transmission Date: 20210419
  Serious: No
  Sender: FDA-Public Use
  Company Number: JP-ASTRAZENECA-2018SE70692

PATIENT
  Age: 82 Year
  Sex: Female

DRUGS (4)
  1. SEIBULE [Suspect]
     Active Substance: MIGLITOL
     Route: 048
  2. SYMBICORT [Suspect]
     Active Substance: BUDESONIDE\FORMOTEROL FUMARATE DIHYDRATE
     Indication: COUGH VARIANT ASTHMA
     Dosage: DOSE AND FREQUENCY UNKNOWN UNKNOWN
     Route: 055
  3. SYMBICORT [Suspect]
     Active Substance: BUDESONIDE\FORMOTEROL FUMARATE DIHYDRATE
     Indication: COUGH VARIANT ASTHMA
     Dosage: 2 DF, DAILY UNKNOWN
     Route: 055
     Dates: start: 20170406
  4. PARIET [Suspect]
     Active Substance: RABEPRAZOLE SODIUM
     Route: 048

REACTIONS (6)
  - Hyponatraemia [Unknown]
  - Decreased appetite [Recovered/Resolved]
  - Oesophageal candidiasis [Unknown]
  - Blood corticotrophin decreased [Unknown]
  - Weight decreased [Recovered/Resolved]
  - Adrenal insufficiency [Unknown]

NARRATIVE: CASE EVENT DATE: 20180502
